FAERS Safety Report 15089838 (Version 1)
Quarter: 2018Q2

REPORT INFORMATION
  Report Type: Spontaneous
  Country: CN (occurrence: CN)
  Receive Date: 20180629
  Receipt Date: 20180629
  Transmission Date: 20180711
  Serious: Yes (Hospitalization)
  Sender: FDA-Public Use
  Company Number: CN-ROCHE-2146928

PATIENT
  Age: 49 Year
  Sex: Female
  Weight: 55 kg

DRUGS (2)
  1. AVASTIN [Suspect]
     Active Substance: BEVACIZUMAB
     Indication: RECTAL CANCER METASTATIC
     Route: 041
     Dates: start: 20180424, end: 20180424
  2. IRINOTECAN [Suspect]
     Active Substance: IRINOTECAN
     Indication: RECTAL CANCER METASTATIC
     Route: 041
     Dates: start: 20180424, end: 20180424

REACTIONS (5)
  - Bone marrow failure [Unknown]
  - Nausea [Unknown]
  - Poor quality sleep [Unknown]
  - Decreased appetite [Unknown]
  - Mental disorder [Unknown]

NARRATIVE: CASE EVENT DATE: 20180507
